FAERS Safety Report 20597615 (Version 3)
Quarter: 2023Q1

REPORT INFORMATION
  Report Type: Spontaneous
  Country: US (occurrence: None)
  Receive Date: 20220315
  Receipt Date: 20230223
  Transmission Date: 20230418
  Serious: No
  Sender: FDA-Public Use
  Company Number: US-ROCHE-2976965

PATIENT
  Sex: Male

DRUGS (39)
  1. XOLAIR [Suspect]
     Active Substance: OMALIZUMAB
     Indication: Product used for unknown indication
     Dosage: STRENGTH: 150MG/ML
     Route: 058
     Dates: start: 202107
  2. XOLAIR [Suspect]
     Active Substance: OMALIZUMAB
  3. XOLAIR [Suspect]
     Active Substance: OMALIZUMAB
  4. XOLAIR [Suspect]
     Active Substance: OMALIZUMAB
     Route: 058
     Dates: start: 20210629
  5. XOLAIR [Suspect]
     Active Substance: OMALIZUMAB
  6. XOLAIR [Suspect]
     Active Substance: OMALIZUMAB
  7. XOLAIR [Suspect]
     Active Substance: OMALIZUMAB
     Route: 058
     Dates: start: 20210726
  8. XOLAIR [Suspect]
     Active Substance: OMALIZUMAB
  9. XOLAIR [Suspect]
     Active Substance: OMALIZUMAB
  10. XOLAIR [Suspect]
     Active Substance: OMALIZUMAB
     Route: 058
     Dates: start: 20210824
  11. XOLAIR [Suspect]
     Active Substance: OMALIZUMAB
  12. XOLAIR [Suspect]
     Active Substance: OMALIZUMAB
  13. XOLAIR [Suspect]
     Active Substance: OMALIZUMAB
     Route: 058
     Dates: start: 20210927
  14. XOLAIR [Suspect]
     Active Substance: OMALIZUMAB
  15. XOLAIR [Suspect]
     Active Substance: OMALIZUMAB
  16. XOLAIR [Suspect]
     Active Substance: OMALIZUMAB
     Route: 058
     Dates: start: 20211104
  17. XOLAIR [Suspect]
     Active Substance: OMALIZUMAB
  18. XOLAIR [Suspect]
     Active Substance: OMALIZUMAB
  19. XOLAIR [Suspect]
     Active Substance: OMALIZUMAB
     Route: 058
  20. XOLAIR [Suspect]
     Active Substance: OMALIZUMAB
  21. XOLAIR [Suspect]
     Active Substance: OMALIZUMAB
  22. TRAMADOL [Concomitant]
     Active Substance: TRAMADOL
     Dosage: 2 TABLETS TWICE DAILY?DISP:120 TABLET, RFL:0
     Route: 048
     Dates: start: 20211123
  23. GABAPENTIN [Concomitant]
     Active Substance: GABAPENTIN
     Dosage: DISP;90 RFL:0?TAKE 1 TABLET(800MG TOTAL)
     Route: 048
     Dates: start: 20211123
  24. CHLORTHALIDONE [Concomitant]
     Active Substance: CHLORTHALIDONE
     Dosage: DISP:30 RFL:0
     Route: 048
     Dates: start: 20211123, end: 20211223
  25. LISINOPRIL [Concomitant]
     Active Substance: LISINOPRIL
     Dosage: DISP:90 TABLET, RFL:3
     Route: 048
     Dates: start: 20210831
  26. DULAGLUTIDE [Concomitant]
     Active Substance: DULAGLUTIDE
     Dates: start: 20210831
  27. OMEPRAZOLE [Concomitant]
     Active Substance: OMEPRAZOLE
     Dosage: DISP:90 RFL:3?TAKE TABLET EVERY MORNING BEFORE BREAKFAST
     Route: 048
     Dates: start: 20210831
  28. AMLODIPINE [Concomitant]
     Active Substance: AMLODIPINE BESYLATE
     Dosage: 1 TABLET DAILY
     Route: 048
     Dates: start: 20210831
  29. PREDNISONE [Concomitant]
     Active Substance: PREDNISONE
     Dosage: TAKE 5 TABS FOR 5 DAYS, 4 TABS FOR 4 DAYS, 3 TABS FOR 3 DAYS, 2 TABS FOR 2 DAYS, 1 TAB FOR ONE DAY
  30. PREDNISONE [Concomitant]
     Active Substance: PREDNISONE
     Route: 048
  31. ROSUVASTATIN [Concomitant]
     Active Substance: ROSUVASTATIN
     Dosage: TAKE 1 TABLET NIGHTLY
     Route: 048
     Dates: start: 20210629
  32. INSULIN LISPRO [Concomitant]
     Active Substance: INSULIN LISPRO
     Dosage: 100 UNIT/ML INJECT 10-15 UNITS UNDER THE SKIN THREE TIMES DAILY
  33. INSULIN GLARGINE [Concomitant]
     Active Substance: INSULIN GLARGINE
     Dosage: 100 UNIT/ML(3 ML) INJECT 54 UNITS NIGHTLY INTO FATTY TISSUE UNDER SKIN
     Dates: start: 20210629
  34. HYDROXYZINE [Concomitant]
     Active Substance: HYDROXYZINE HYDROCHLORIDE
     Route: 048
     Dates: start: 20210208
  35. MONTELUKAST [Concomitant]
     Active Substance: MONTELUKAST SODIUM
     Route: 048
     Dates: start: 20211214
  36. CYPROHEPTADINE [Concomitant]
     Active Substance: CYPROHEPTADINE
     Route: 048
  37. ESCITALOPRAM OXALATE [Concomitant]
     Active Substance: ESCITALOPRAM OXALATE
     Route: 048
  38. CETIRIZINE HYDROCHLORIDE [Concomitant]
     Active Substance: CETIRIZINE HYDROCHLORIDE
     Route: 048
     Dates: start: 20210204
  39. FAMOTIDINE [Concomitant]
     Active Substance: FAMOTIDINE
     Route: 048

REACTIONS (2)
  - Drug ineffective [Unknown]
  - No adverse event [Unknown]
